FAERS Safety Report 9134049 (Version 3)
Quarter: 2013Q4

REPORT INFORMATION
  Report Type: Spontaneous
  Country: CO (occurrence: CO)
  Receive Date: 20130304
  Receipt Date: 20131029
  Transmission Date: 20140711
  Serious: Yes (Disabling, Other)
  Sender: FDA-Public Use
  Company Number: CO-AMGEN-COLSP2013014451

PATIENT
  Age: 62 Year
  Sex: Female

DRUGS (6)
  1. ENBREL [Suspect]
     Indication: RHEUMATOID ARTHRITIS
     Dosage: 50 MG, WEEKLY
     Route: 058
     Dates: start: 2008
  2. OMEPRAZOL                          /00661201/ [Concomitant]
     Indication: GASTRITIS
     Dosage: 20 MG, 1X/DAY IN FASTING
     Route: 048
     Dates: start: 2005
  3. VERAPAMIL [Concomitant]
     Indication: HYPERTENSION
     Dosage: 120 MG, 1X/DAY
     Route: 048
     Dates: start: 2008
  4. ACETAMINOPHEN [Concomitant]
     Indication: ARTHRALGIA
     Dosage: 500 MG, AS NEEDED
     Route: 048
     Dates: start: 2011
  5. ACETAMINOPHEN [Concomitant]
     Indication: HEADACHE
     Dosage: UNK
  6. ACETAMINOPHEN [Concomitant]
     Indication: OEDEMA PERIPHERAL

REACTIONS (14)
  - Synovitis [Not Recovered/Not Resolved]
  - Diarrhoea [Recovered/Resolved]
  - Abdominal pain upper [Recovered/Resolved]
  - Oropharyngeal pain [Recovered/Resolved]
  - Eye burns [Recovered/Resolved]
  - Conjunctivitis [Recovered/Resolved]
  - Eye discharge [Recovered/Resolved]
  - Ocular hyperaemia [Recovered/Resolved]
  - Eye pruritus [Not Recovered/Not Resolved]
  - Drug dose omission [Unknown]
  - Joint stiffness [Recovered/Resolved]
  - Local swelling [Recovered/Resolved]
  - Gastrointestinal infection [Recovered/Resolved]
  - Influenza [Recovered/Resolved]
